FAERS Safety Report 9174438 (Version 1)
Quarter: 2013Q1

REPORT INFORMATION
  Report Type: Spontaneous
  Country: IT (occurrence: None)
  Receive Date: 20130313
  Receipt Date: 20130313
  Transmission Date: 20140127
  Serious: Yes (Hospitalization)
  Sender: FDA-Public Use
  Company Number: AUR-APL-2013-02169

PATIENT
  Age: 39 Year
  Sex: Male

DRUGS (1)
  1. CEFTRIAXONE (CEFTRIAXONE) [Suspect]
     Indication: ORCHITIS
     Dosage: ONE DOSE UNIT
     Route: 030
     Dates: start: 20130204, end: 20130204

REACTIONS (5)
  - Drug hypersensitivity [None]
  - Pruritus [None]
  - Urticaria [None]
  - Malaise [None]
  - Malaise [None]
